FAERS Safety Report 19218831 (Version 5)
Quarter: 2021Q2

REPORT INFORMATION
  Report Type: Spontaneous
  Country: PT (occurrence: PT)
  Receive Date: 20210505
  Receipt Date: 20210610
  Transmission Date: 20210717
  Serious: Yes (Hospitalization, Other)
  Sender: FDA-Public Use
  Company Number: PT-BAYER-2021-126259

PATIENT
  Age: 34 Year
  Sex: Female
  Weight: 65 kg

DRUGS (1)
  1. MIRENA [Suspect]
     Active Substance: LEVONORGESTREL
     Indication: CONTRACEPTION
     Dosage: 20 ?G PER DAY, CONTINUOUSLY
     Route: 015
     Dates: start: 2019, end: 20210418

REACTIONS (10)
  - Haemodynamic instability [None]
  - Presyncope [None]
  - Amenorrhoea [Recovered/Resolved]
  - Ruptured ectopic pregnancy [None]
  - Vaginal haemorrhage [Recovered/Resolved]
  - Pelvic pain [None]
  - Drug ineffective [None]
  - Haemoperitoneum [None]
  - Orthostatic hypotension [None]
  - Ectopic pregnancy with contraceptive device [None]

NARRATIVE: CASE EVENT DATE: 20210418
